FAERS Safety Report 15558122 (Version 5)
Quarter: 2019Q1

REPORT INFORMATION
  Report Type: Spontaneous
  Country: US (occurrence: US)
  Receive Date: 20181027
  Receipt Date: 20190318
  Transmission Date: 20190417
  Serious: Yes (Other)
  Sender: FDA-Public Use
  Company Number: PHEH2018US045095

PATIENT
  Sex: Female

DRUGS (2)
  1. AFINITOR [Suspect]
     Active Substance: EVEROLIMUS
     Indication: UTERINE CANCER
     Dosage: 10 MG, QD
     Route: 048
  2. AFINITOR [Suspect]
     Active Substance: EVEROLIMUS
     Dosage: 10 MG, QD
     Route: 048

REACTIONS (12)
  - Pain of skin [Unknown]
  - Stomatitis [Unknown]
  - Drug intolerance [Unknown]
  - Product use in unapproved indication [Unknown]
  - Drug ineffective [Not Recovered/Not Resolved]
  - Uterine cancer [Unknown]
  - Malignant neoplasm progression [Unknown]
  - Alopecia [Unknown]
  - Arthralgia [Unknown]
  - Rash [Unknown]
  - Haemoglobin decreased [Unknown]
  - Cough [Unknown]
